FAERS Safety Report 5076138-5 (Version None)
Quarter: 2006Q3

REPORT INFORMATION
  Report Type: 
  Country: None (occurrence: None)
  Receive Date: 20060725
  Receipt Date: 20060420
  Transmission Date: 20061208
  Serious: No
  Sender: FDA-Public Use
  Company Number: 200610693BWH

PATIENT
  Sex: Female

DRUGS (2)
  1. NEXAVAR [Suspect]
     Dosage: SEE IMAGE
     Route: 048
     Dates: start: 20060126, end: 20060202
  2. NEXAVAR [Suspect]
     Dosage: SEE IMAGE
     Route: 048
     Dates: start: 20060203

REACTIONS (7)
  - BLISTER [None]
  - DECREASED ACTIVITY [None]
  - HAEMOGLOBIN DECREASED [None]
  - INSOMNIA [None]
  - PAIN OF SKIN [None]
  - PRURITUS [None]
  - RASH [None]
